FAERS Safety Report 10330005 (Version 1)
Quarter: 2014Q3

REPORT INFORMATION
  Report Type: Spontaneous
  Country: CN (occurrence: CN)
  Receive Date: 20140721
  Receipt Date: 20140721
  Transmission Date: 20150326
  Serious: Yes (Other)
  Sender: FDA-Public Use
  Company Number: CN-GLAXOSMITHKLINE-B1015890A

PATIENT
  Age: 44 Year
  Sex: Male

DRUGS (1)
  1. ZINACEF [Suspect]
     Active Substance: CEFUROXIME SODIUM
     Indication: LUNG INFECTION
     Dosage: 3G TWICE PER DAY
     Route: 042
     Dates: start: 20130719, end: 20130720

REACTIONS (4)
  - Pruritus generalised [Recovering/Resolving]
  - Renal failure chronic [Recovering/Resolving]
  - Drug hypersensitivity [Recovering/Resolving]
  - Rash erythematous [Recovering/Resolving]

NARRATIVE: CASE EVENT DATE: 20130719
